FAERS Safety Report 6456184-7 (Version None)
Quarter: 2009Q4

REPORT INFORMATION
  Report Type: 
  Country: None (occurrence: None)
  Receive Date: 20091125
  Receipt Date: 20091118
  Transmission Date: 20100525
  Serious: Yes (Other)
  Sender: FDA-Public Use
  Company Number: US-PFIZER INC-2009300186

PATIENT
  Sex: Female

DRUGS (2)
  1. ATROPINE SULFATE, DIPHENOXYLATE HCL [Suspect]
     Dosage: UNK
     Route: 048
  2. ZOLPIDEM TARTRATE [Interacting]
     Indication: INSOMNIA
     Dosage: 5 MG TWICE WEEKLY.
     Route: 048

REACTIONS (3)
  - AMNESIA [None]
  - DRUG INTERACTION [None]
  - GAIT DISTURBANCE [None]
